FAERS Safety Report 5165963-8 (Version None)
Quarter: 2006Q4

REPORT INFORMATION
  Report Type: 
  Country: None (occurrence: None)
  Receive Date: 20061206
  Receipt Date: 20061109
  Transmission Date: 20070319
  Serious: Yes (Other)
  Sender: FDA-Public Use
  Company Number: JP-ABBOTT-06P-087-0349854-00

PATIENT
  Sex: Female

DRUGS (10)
  1. SEVOFLURANE [Suspect]
     Indication: GENERAL ANAESTHESIA
     Dosage: 1-2%
     Route: 055
     Dates: start: 20060705, end: 20060705
  2. NITROUS OXIDE W/ OXYGEN [Concomitant]
     Indication: GENERAL ANAESTHESIA
     Route: 055
     Dates: start: 20060705, end: 20060705
  3. OXYGEN [Concomitant]
     Indication: ANAESTHESIA
  4. ATROPINE SULFATE [Concomitant]
     Indication: BRADYCARDIA
     Route: 042
     Dates: start: 20060705, end: 20060705
  5. PROPOFOL [Concomitant]
     Indication: INDUCTION OF ANAESTHESIA
     Route: 042
     Dates: start: 20060705, end: 20060705
  6. VECURONIUM BROMIDE [Concomitant]
     Indication: MUSCLE RELAXANT THERAPY
     Route: 042
     Dates: start: 20060705, end: 20060705
  7. NITROGLYCERIN [Concomitant]
     Indication: HYPOTENSIVE ANAESTHESIA PROCEDURE
     Route: 042
     Dates: start: 20060705, end: 20060705
  8. ROPIVACAINE [Concomitant]
     Indication: EPIDURAL ANAESTHESIA
     Route: 008
     Dates: start: 20060705, end: 20060705
  9. FENTANYL CITRATE [Concomitant]
     Indication: ANALGESIC THERAPY
     Route: 042
     Dates: start: 20060705, end: 20060705
  10. NEOSTIGMINE METHYLSULFATE [Concomitant]
     Indication: ANAESTHESIA REVERSAL
     Route: 042
     Dates: start: 20060705, end: 20060705

REACTIONS (1)
  - PULMONARY EMBOLISM [None]
